FAERS Safety Report 7064336-0 (Version None)
Quarter: 2010Q4

REPORT INFORMATION
  Report Type: 
  Country: None (occurrence: None)
  Receive Date: 20101027
  Receipt Date: 20101018
  Transmission Date: 20110411
  Serious: Yes (Hospitalization, Other)
  Sender: FDA-Public Use
  Company Number: CA-JNJFOC-20101005618

PATIENT
  Sex: Male
  Weight: 118.2 kg

DRUGS (3)
  1. REMICADE [Suspect]
     Indication: CROHN'S DISEASE
     Route: 042
  2. IMURAN [Concomitant]
     Route: 048
  3. PREDNISONE [Concomitant]
     Dosage: TAPERING
     Route: 048

REACTIONS (11)
  - DYSPNOEA [None]
  - EMOTIONAL DISTRESS [None]
  - FEELING HOT [None]
  - FLUSHING [None]
  - HEADACHE [None]
  - HYPERHIDROSIS [None]
  - INFUSION RELATED REACTION [None]
  - INTESTINAL OBSTRUCTION [None]
  - MUSCULOSKELETAL DISCOMFORT [None]
  - NAUSEA [None]
  - PALPITATIONS [None]
